FAERS Safety Report 7937134 (Version 2)
Quarter: 2014Q1

REPORT INFORMATION
  Report Type: Report from Study
  Country: US (occurrence: US)
  Receive Date: 20110509
  Receipt Date: 20140325
  Transmission Date: 20141002
  Serious: Yes (Hospitalization)
  Sender: FDA-Public Use
  Company Number: US-ALEXION PHARMACEUTICALS INC.-A201100285

PATIENT
  Age: 41 Year
  Sex: Male

DRUGS (5)
  1. SOLIRIS [Suspect]
     Indication: PAROXYSMAL NOCTURNAL HAEMOGLOBINURIA
     Dosage: UNK
     Route: 042
  2. PREDNISONE [Suspect]
     Indication: PAROXYSMAL NOCTURNAL HAEMOGLOBINURIA
     Dosage: UNK
  3. CYCLOSPORINE [Suspect]
  4. DESFERAL                           /00062903/ [Concomitant]
     Indication: IRON OVERLOAD
     Dosage: UNK
  5. EXJADE [Concomitant]

REACTIONS (18)
  - Blood glucose increased [Recovered/Resolved]
  - Renal failure [Recovered/Resolved]
  - Asthenia [Recovered/Resolved]
  - Dehydration [Recovered/Resolved]
  - Leukopenia [Recovered/Resolved]
  - Anaemia [Recovered/Resolved]
  - Haemoglobin decreased [Unknown]
  - Blood lactate dehydrogenase increased [Recovering/Resolving]
  - Serum ferritin increased [Unknown]
  - Deafness [Unknown]
  - Blindness [Unknown]
  - Swelling face [Unknown]
  - Rash generalised [Unknown]
  - Pulmonary congestion [Unknown]
  - Blood pressure increased [Unknown]
  - Confusional state [Unknown]
  - Infection [Unknown]
  - Thrombocytopenia [Unknown]
